FAERS Safety Report 10047609 (Version 1)
Quarter: 2014Q1

REPORT INFORMATION
  Report Type: Spontaneous
  Country: DK (occurrence: DK)
  Receive Date: 20140331
  Receipt Date: 20140331
  Transmission Date: 20141002
  Serious: Yes (Hospitalization)
  Sender: FDA-Public Use
  Company Number: DK-INCYTE CORPORATION-2014IN000834

PATIENT
  Age: 67 Year
  Sex: Male
  Weight: 90 kg

DRUGS (4)
  1. JAKAVI [Suspect]
     Indication: MYELOFIBROSIS
     Dosage: 20 MG, BID
     Route: 048
     Dates: start: 20131021, end: 20131110
  2. JAKAVI [Suspect]
     Dosage: 5 MG, BID
     Route: 048
  3. INNOHEP [Concomitant]
     Dosage: UNK
  4. MAREVAN [Concomitant]
     Dosage: UNK

REACTIONS (3)
  - Jugular vein thrombosis [Recovering/Resolving]
  - Local swelling [Recovered/Resolved]
  - Pleural effusion [Unknown]
